FAERS Safety Report 24655399 (Version 1)
Quarter: 2024Q4

REPORT INFORMATION
  Report Type: Spontaneous
  Country: US (occurrence: None)
  Receive Date: 20241123
  Receipt Date: 20241123
  Transmission Date: 20250115
  Serious: No
  Sender: ENCUBE ETHICALS
  Company Number: US-Encube-001411

PATIENT
  Sex: Male

DRUGS (2)
  1. DICLOFENAC SODIUM [Suspect]
     Active Substance: DICLOFENAC SODIUM
     Indication: Arthritis
     Dosage: 02 GM IN THE MORNING AND 02 GM IN THE EVENING
     Dates: start: 20241108
  2. WARFARIN [Concomitant]
     Active Substance: WARFARIN
     Indication: Anticoagulant therapy

REACTIONS (2)
  - Application site bruise [Unknown]
  - Off label use [Unknown]

NARRATIVE: CASE EVENT DATE: 20241101
